FAERS Safety Report 23794146 (Version 1)
Quarter: 2024Q2

REPORT INFORMATION
  Report Type: Spontaneous
  Country: US (occurrence: None)
  Receive Date: 20240426
  Receipt Date: 20240426
  Transmission Date: 20240716
  Serious: No
  Sender: FDA-Public Use
  Company Number: None

PATIENT
  Age: 63 Year
  Sex: Female

DRUGS (18)
  1. OPSUMIT [Suspect]
     Active Substance: MACITENTAN
     Indication: Pulmonary arterial hypertension
     Dosage: FREQUENCY : DAILY;?
     Route: 048
     Dates: start: 20170427
  2. TADALAFIL [Concomitant]
  3. TREPROSTINIL [Concomitant]
  4. GABAPENTIN [Concomitant]
  5. FUROSEMIDE [Concomitant]
  6. SPIRONOLACTONE [Concomitant]
  7. LOPERAMIDE [Concomitant]
  8. LEVOTHYROXINE [Concomitant]
  9. TIZANIDINE [Concomitant]
  10. FAMOTIDINE [Concomitant]
  11. CHOLESTYRAMINE [Concomitant]
     Active Substance: CHOLESTYRAMINE
  12. LIDOCAINE TOP CREAM [Concomitant]
  13. DICLOFENAC TOP GL [Concomitant]
  14. ESGIC [Concomitant]
     Active Substance: ACETAMINOPHEN\BUTALBITAL\CAFFEINE
  15. KETOTIFEN OPHT DROP [Concomitant]
  16. METFORMIN [Concomitant]
  17. ATORVASTATIN [Concomitant]
  18. METAMUCIL [Concomitant]

REACTIONS (2)
  - Acute respiratory failure [None]
  - Pneumonia [None]

NARRATIVE: CASE EVENT DATE: 20240411
